FAERS Safety Report 11128305 (Version 1)
Quarter: 2015Q2

REPORT INFORMATION
  Report Type: Spontaneous
  Country: PE (occurrence: PE)
  Receive Date: 20150521
  Receipt Date: 20150521
  Transmission Date: 20150821
  Serious: Yes (Death, Other)
  Sender: FDA-Public Use
  Company Number: PE-PFIZER INC-2015066649

PATIENT
  Age: 78 Year
  Sex: Male

DRUGS (1)
  1. EPAMIN [Suspect]
     Active Substance: PHENYTOIN SODIUM
     Indication: PARKINSON^S DISEASE

REACTIONS (3)
  - Lung disorder [Fatal]
  - Infarction [Fatal]
  - Seizure [Not Recovered/Not Resolved]
